FAERS Safety Report 25929130 (Version 1)
Quarter: 2025Q4

REPORT INFORMATION
  Report Type: Spontaneous
  Country: US (occurrence: US)
  Receive Date: 20251016
  Receipt Date: 20251016
  Transmission Date: 20260117
  Serious: No
  Sender: ORPHALAN
  Company Number: US-ORPHALAN-US-ORP-25-00030

PATIENT
  Sex: Male

DRUGS (3)
  1. CUVRIOR [Suspect]
     Active Substance: TRIENTINE TETRAHYDROCHLORIDE
     Indication: Hepato-lenticular degeneration
     Dosage: 600 MG QAM AND 300MG QPM
     Route: 048
     Dates: start: 20241112
  2. CUVRIOR [Suspect]
     Active Substance: TRIENTINE TETRAHYDROCHLORIDE
     Dosage: 600 MILLIGRAM, QD
     Route: 048
     Dates: start: 20240702, end: 20241112
  3. CUVRIOR [Suspect]
     Active Substance: TRIENTINE TETRAHYDROCHLORIDE
     Dosage: 300 MILLIGRAM, BID
     Route: 048
     Dates: start: 20240506, end: 20240702

REACTIONS (1)
  - Treatment noncompliance [Unknown]
